FAERS Safety Report 12536086 (Version 2)
Quarter: 2016Q3

REPORT INFORMATION
  Report Type: Spontaneous
  Country: TW (occurrence: TW)
  Receive Date: 20160707
  Receipt Date: 20160715
  Transmission Date: 20161109
  Serious: Yes (Hospitalization)
  Sender: FDA-Public Use
  Company Number: TW-SA-2016SA123700

PATIENT
  Age: 75 Year
  Sex: Male

DRUGS (6)
  1. RIFAPENTINE [Suspect]
     Active Substance: RIFAPENTINE
     Indication: LATENT TUBERCULOSIS
     Route: 048
     Dates: start: 20160524, end: 20160629
  2. DOXABEN [Concomitant]
     Active Substance: DOXAZOSIN MESYLATE
     Indication: HYPERTENSION
     Route: 048
     Dates: start: 20160408
  3. DICLOFENAC [Concomitant]
     Active Substance: DICLOFENAC
     Indication: ARTHRALGIA
     Route: 048
     Dates: start: 20160408
  4. IWELL [Concomitant]
     Indication: GASTRIC DISORDER
     Route: 048
     Dates: start: 20160408
  5. INH [Suspect]
     Active Substance: ISONIAZID
     Indication: LATENT TUBERCULOSIS
     Route: 065
  6. MEPHENOXALONE [Concomitant]
     Active Substance: MEPHENOXALONE
     Indication: ARTHRALGIA
     Route: 048
     Dates: start: 20160408

REACTIONS (2)
  - Diarrhoea [Unknown]
  - Hepatotoxicity [Unknown]

NARRATIVE: CASE EVENT DATE: 20160629
